FAERS Safety Report 20437054 (Version 1)
Quarter: 2022Q1

REPORT INFORMATION
  Report Type: Spontaneous
  Country: US (occurrence: None)
  Receive Date: 20220204
  Receipt Date: 20220204
  Transmission Date: 20220423
  Serious: Yes (Life-Threatening, Hospitalization, Disabling)
  Sender: FDA-Public Use
  Company Number: None

PATIENT
  Age: 74 Year
  Sex: Male
  Weight: 83.25 kg

DRUGS (6)
  1. TRULICITY [Suspect]
     Active Substance: DULAGLUTIDE
     Indication: Blood glucose increased
     Dosage: 1 A WEEK?
     Route: 030
     Dates: start: 20201027, end: 20220111
  2. VENT/TRECHEA [Concomitant]
  3. FEEDING TUBE [Concomitant]
  4. FISH OIL [Concomitant]
     Active Substance: FISH OIL
  5. VITAMIN D3 [Concomitant]
     Active Substance: CHOLECALCIFEROL
  6. B MILTI [Concomitant]

REACTIONS (8)
  - Pancreatitis acute [None]
  - Pneumonia [None]
  - Sepsis [None]
  - Clostridium difficile infection [None]
  - Immobile [None]
  - Bedridden [None]
  - Dysstasia [None]
  - Gait inability [None]

NARRATIVE: CASE EVENT DATE: 20220111
